FAERS Safety Report 24060219 (Version 1)
Quarter: 2024Q3

REPORT INFORMATION
  Report Type: Spontaneous
  Country: US (occurrence: US)
  Receive Date: 20240708
  Receipt Date: 20240708
  Transmission Date: 20241017
  Serious: No
  Sender: GUERBET
  Company Number: US-GUERBET / LLC-US-20240056

PATIENT
  Age: 39 Year
  Sex: Male
  Weight: 74.8 kg

DRUGS (2)
  1. OPTIRAY 350 [Suspect]
     Active Substance: IOVERSOL
     Indication: Angiogram
     Route: 042
     Dates: start: 20240330, end: 20240330
  2. OPTIRAY 350 [Suspect]
     Active Substance: IOVERSOL
     Indication: Arteriogram carotid

REACTIONS (2)
  - Muscle contractions involuntary [Recovered/Resolved]
  - Muscle spasms [Recovered/Resolved]

NARRATIVE: CASE EVENT DATE: 20240330
